FAERS Safety Report 22527668 (Version 1)
Quarter: 2023Q2

REPORT INFORMATION
  Report Type: Report from Study
  Country: GB (occurrence: GB)
  Receive Date: 20230606
  Receipt Date: 20230606
  Transmission Date: 20230722
  Serious: Yes (Hospitalization)
  Sender: FDA-Public Use
  Company Number: GB-002147023-NVSC2023GB125275

PATIENT
  Sex: Male

DRUGS (1)
  1. HYRIMOZ [Suspect]
     Active Substance: ADALIMUMAB-ADAZ
     Indication: Psoriatic arthropathy
     Dosage: 40 MG (2 PRE-FILLED DISPOSABLE INJECTION FREQUENCY: EOW (EVERY OTHER WEEK))
     Route: 058
     Dates: start: 20201102

REACTIONS (2)
  - Swelling [Unknown]
  - Product dose omission issue [Unknown]
